FAERS Safety Report 8275823-1 (Version None)
Quarter: 2012Q2

REPORT INFORMATION
  Report Type: 
  Country: None (occurrence: None)
  Receive Date: 20120410
  Receipt Date: 20120410
  Transmission Date: 20120825
  Serious: No
  Sender: FDA-Public Use
  Company Number: None

PATIENT

DRUGS (2)
  1. SENOKOT [Suspect]
     Dosage: 8.6 MG ONE UP TO 4X5/DAY ORAL
     Route: 048
     Dates: start: 20030101
  2. COLACE [Suspect]
     Dosage: 100MG ONE UP TO 4X5/DAY ORAL
     Route: 048
     Dates: start: 20030101

REACTIONS (1)
  - DRUG INEFFECTIVE [None]
